FAERS Safety Report 5345790-9 (Version None)
Quarter: 2007Q2

REPORT INFORMATION
  Report Type: 
  Country: None (occurrence: None)
  Receive Date: 20070605
  Receipt Date: 20070601
  Transmission Date: 20071010
  Serious: Yes (Hospitalization)
  Sender: FDA-Public Use
  Company Number: HQ8674618JUL2000

PATIENT
  Age: 29 Year
  Sex: Male

DRUGS (4)
  1. IBUPROFEN [Suspect]
     Indication: PAIN IN EXTREMITY
     Dosage: 200 MG (FREQUENCY UNKNOWN)
     Route: 048
  2. IBUPROFEN [Interacting]
     Dosage: 400 MG (FREQUENCY UNKNOWN) AS PER GENERAL PRACTITIONER
     Route: 048
  3. CIPROFIBRATE [Interacting]
     Indication: HYPERLIPIDAEMIA
     Route: 048
  4. CIPROFIBRATE [Interacting]
     Route: 048

REACTIONS (3)
  - DRUG INTERACTION [None]
  - RENAL FAILURE ACUTE [None]
  - RHABDOMYOLYSIS [None]
